FAERS Safety Report 10070101 (Version 1)
Quarter: 2014Q2

REPORT INFORMATION
  Report Type: Spontaneous
  Country: FR (occurrence: FR)
  Receive Date: 20140410
  Receipt Date: 20140410
  Transmission Date: 20141212
  Serious: Yes (Hospitalization)
  Sender: FDA-Public Use
  Company Number: PHHY2014FR040315

PATIENT
  Age: 53 Year
  Sex: Female

DRUGS (2)
  1. STAGID [Suspect]
     Indication: HYPERGLYCAEMIA
  2. SIGNIFOR [Suspect]
     Indication: PITUITARY-DEPENDENT CUSHING^S SYNDROME
     Dosage: 600 UG, BID
     Dates: start: 20140121

REACTIONS (2)
  - Hyperglycaemia [Not Recovered/Not Resolved]
  - Diarrhoea [Unknown]
